FAERS Safety Report 10191658 (Version 2)
Quarter: 2014Q2

REPORT INFORMATION
  Report Type: Spontaneous
  Country: CO (occurrence: CO)
  Receive Date: 20140523
  Receipt Date: 20140523
  Transmission Date: 20141212
  Serious: Yes (Death, Hospitalization)
  Sender: FDA-Public Use
  Company Number: CO-PFIZER INC-2013320548

PATIENT
  Age: 66 Year
  Sex: Male

DRUGS (11)
  1. SUTENT [Suspect]
     Indication: RENAL CANCER METASTATIC
     Dosage: 50 MG, CYCLIC
     Route: 048
     Dates: start: 201309
  2. COMPLEJO B [Concomitant]
     Dosage: UNK, MG
     Route: 048
  3. FOLIC ACID [Concomitant]
     Dosage: UNK, MG
     Route: 048
  4. OMEPRAZOLE [Concomitant]
     Dosage: UNK,  MG
     Route: 048
  5. CALCITRIOL [Concomitant]
     Dosage: UNK, MG
     Route: 048
  6. CALCIUM CARBONATE [Concomitant]
     Dosage: UNK, MG
     Route: 048
  7. IRON SUCROSE [Concomitant]
     Dosage: UNK
     Route: 042
  8. LOSARTAN [Concomitant]
     Dosage: UNK, MG
     Route: 048
  9. ACETAMINOPHEN [Concomitant]
     Dosage: UNK, MG
     Route: 048
  10. FUROSEMIDE [Concomitant]
     Dosage: UNK, MG
     Route: 048
  11. ASA [Concomitant]
     Dosage: UNK, MG
     Route: 048

REACTIONS (5)
  - Peritonitis [Fatal]
  - Catheter site infection [Not Recovered/Not Resolved]
  - Fatigue [Not Recovered/Not Resolved]
  - Decreased appetite [Not Recovered/Not Resolved]
  - Tongue blistering [Not Recovered/Not Resolved]
